FAERS Safety Report 8423207-5 (Version None)
Quarter: 2012Q2

REPORT INFORMATION
  Report Type: 
  Country: None (occurrence: None)
  Receive Date: 20120608
  Receipt Date: 20120528
  Transmission Date: 20120825
  Serious: Yes (Other)
  Sender: FDA-Public Use
  Company Number: HR-TEVA-341054ISR

PATIENT
  Age: 82 Year
  Sex: Female
  Weight: 65 kg

DRUGS (16)
  1. VOLTAREN-XR [Interacting]
     Route: 048
  2. TRAMADOL HCL [Suspect]
     Route: 048
     Dates: start: 20110801, end: 20110902
  3. LIDOCAINE [Concomitant]
     Route: 062
     Dates: end: 20110902
  4. TRANDOLAPRIL [Concomitant]
     Dosage: .5 MILLIGRAM;
     Route: 048
     Dates: start: 20110114
  5. HERPLEX [Suspect]
     Indication: HERPES ZOSTER
     Dosage: 4000 MILLIGRAM;
     Route: 048
     Dates: start: 20110808, end: 20110902
  6. LYRICA [Concomitant]
     Route: 048
  7. TRAMADOL HYDROCHLORIDE [Concomitant]
  8. TEGRETOL [Interacting]
     Indication: CRANIAL NERVE DISORDER
     Dosage: 200 MILLIGRAM;
     Route: 048
     Dates: start: 20110817, end: 20110902
  9. IBRUPROFEN [Interacting]
     Route: 048
  10. CERSON [Concomitant]
     Route: 048
  11. VENTOLIN [Concomitant]
  12. OXAZEPAM [Suspect]
     Indication: PERSONALITY CHANGE DUE TO A GENERAL MEDICAL CONDITION
     Dosage: 20 MILLIGRAM;
     Route: 048
     Dates: start: 20110114, end: 20110902
  13. AMITRIPTYLINE HCL [Suspect]
     Dates: end: 20110902
  14. BYOL COR [Concomitant]
     Indication: HYPERTENSION
     Dosage: 2.5 MILLIGRAM;
     Route: 048
     Dates: start: 20110114
  15. FLUTICASONE PROPIONATE/SALMETEROL [Concomitant]
     Indication: CHRONIC OBSTRUCTIVE PULMONARY DISEASE
     Dosage: DOSE: 250MCG + 50 MCG
     Route: 048
     Dates: start: 20110114
  16. RANITAL [Concomitant]
     Route: 048

REACTIONS (7)
  - HEPATIC ENCEPHALOPATHY [None]
  - DELIRIUM [None]
  - AGGRESSION [None]
  - DRUG INTERACTION [None]
  - IMPULSE-CONTROL DISORDER [None]
  - DRUG-INDUCED LIVER INJURY [None]
  - LOSS OF CONSCIOUSNESS [None]
